FAERS Safety Report 12466618 (Version 2)
Quarter: 2016Q4

REPORT INFORMATION
  Report Type: Report from Study
  Country: US (occurrence: US)
  Receive Date: 20160615
  Receipt Date: 20161122
  Transmission Date: 20170207
  Serious: No
  Sender: FDA-Public Use
  Company Number: US-ALEXION-A201604278

PATIENT
  Age: 58 Year
  Sex: Female

DRUGS (1)
  1. STRENSIQ [Suspect]
     Active Substance: ASFOTASE ALFA
     Indication: HYPOPHOSPHATASIA
     Dosage: 5.2 ML, SIX TIMES/WEEK
     Route: 058
     Dates: start: 20160603

REACTIONS (11)
  - Oral hyperaesthesia [Unknown]
  - Hyperaesthesia [Unknown]
  - Paraesthesia [Recovered/Resolved]
  - Injection site erythema [Recovered/Resolved]
  - Injection site warmth [Unknown]
  - Paraesthesia oral [Recovered/Resolved]
  - Injection site pruritus [Unknown]
  - Dysgeusia [Unknown]
  - Sinus disorder [Unknown]
  - Pain [Unknown]
  - Injection site reaction [Unknown]

NARRATIVE: CASE EVENT DATE: 201606
